FAERS Safety Report 7931507-8 (Version None)
Quarter: 2011Q4

REPORT INFORMATION
  Report Type: 
  Country: None (occurrence: None)
  Receive Date: 20111121
  Receipt Date: 20111121
  Transmission Date: 20120403
  Serious: Yes (Life-Threatening, Hospitalization)
  Sender: FDA-Public Use
  Company Number: None

PATIENT
  Sex: Male
  Weight: 75 kg

DRUGS (12)
  1. ASPIRIN [Concomitant]
  2. VERAPAMIL [Concomitant]
  3. DIGOXIN [Concomitant]
  4. CARVEDILOL [Concomitant]
  5. PRADAXA [Suspect]
     Indication: ATRIAL FIBRILLATION
     Dosage: 150 MG
     Route: 048
  6. CELEXA [Concomitant]
  7. FERROUS SULFATE TAB [Concomitant]
  8. TAMSULOSIN HCL [Concomitant]
  9. PLAVIX [Concomitant]
     Indication: CORONARY ANGIOPLASTY
     Dosage: 75 MG
     Route: 048
  10. LASIX [Concomitant]
  11. FAMOTIDINE [Concomitant]
  12. KCL ER [Concomitant]

REACTIONS (2)
  - CEREBRAL INFARCTION [None]
  - HAEMORRHAGE INTRACRANIAL [None]
